FAERS Safety Report 11469130 (Version 2)
Quarter: 2015Q3

REPORT INFORMATION
  Report Type: Spontaneous
  Country: ES (occurrence: ES)
  Receive Date: 20150908
  Receipt Date: 20150911
  Transmission Date: 20151125
  Serious: Yes (Other)
  Sender: FDA-Public Use
  Company Number: ES-UCBSA-2015028013

PATIENT
  Age: 55 Year
  Sex: Female
  Weight: 70 kg

DRUGS (3)
  1. NEUPRO [Suspect]
     Active Substance: ROTIGOTINE
     Indication: RESTLESS LEGS SYNDROME
     Dosage: 1 MG, ONCE DAILY (QD)
     Route: 058
     Dates: start: 20150624, end: 20150713
  2. PANTOPRAZOLE SODIUM. [Concomitant]
     Active Substance: PANTOPRAZOLE SODIUM
     Indication: CHRONIC GASTRITIS
     Dosage: 20 MG, ONCE DAILY (QD)
     Route: 048
     Dates: start: 2008
  3. OPTOVITE B12 [Concomitant]
     Indication: CHRONIC GASTRITIS
     Dosage: 1000 ?G, 2X/WEEK
     Dates: start: 2008

REACTIONS (6)
  - Muscle spasms [Unknown]
  - Dysaesthesia [Recovering/Resolving]
  - Ecchymosis [Recovering/Resolving]
  - Hirsutism [Unknown]
  - Pruritus generalised [Unknown]
  - Paraesthesia [Unknown]

NARRATIVE: CASE EVENT DATE: 20150701
